FAERS Safety Report 8227263-9 (Version None)
Quarter: 2012Q1

REPORT INFORMATION
  Report Type: 
  Country: None (occurrence: None)
  Receive Date: 20120322
  Receipt Date: 20120316
  Transmission Date: 20120608
  Serious: Yes (Hospitalization, Other)
  Sender: FDA-Public Use
  Company Number: PHHY2012MX024049

PATIENT
  Sex: Female

DRUGS (3)
  1. DIOVAN [Suspect]
     Indication: HYPERTENSION
     Dosage: 1 DF (160 MG VALSARTAN), PER DAY
     Dates: start: 20110101
  2. METFORMIN HCL [Concomitant]
     Indication: DIABETES MELLITUS
     Dosage: 500 MG, DAILY
  3. RASILEZ [Suspect]
     Indication: HYPERTENSION
     Dosage: 1 DF (150 MG ALISKIREN) PER DAY
     Dates: start: 20120201

REACTIONS (1)
  - BLOOD GLUCOSE DECREASED [None]
